FAERS Safety Report 9006912 (Version 1)
Quarter: 2013Q1

REPORT INFORMATION
  Report Type: Spontaneous
  Country: FR (occurrence: FR)
  Receive Date: 20130110
  Receipt Date: 20130110
  Transmission Date: 20140127
  Serious: Yes (Other)
  Sender: FDA-Public Use
  Company Number: FR-TEVA-359400ISR

PATIENT
  Age: 63 None
  Sex: Male

DRUGS (6)
  1. COPAXONE [Suspect]
     Indication: RELAPSING-REMITTING MULTIPLE SCLEROSIS
     Dosage: 20 MILLIGRAM DAILY; WITH THE AUTOJECT
     Route: 058
     Dates: start: 2010, end: 201208
  2. NEURONTIN [Concomitant]
  3. LYRICA [Concomitant]
  4. LIORESAL [Concomitant]
     Indication: MUSCLE SPASTICITY
     Dosage: 4 DOSAGE FORMS DAILY; 1 DOSE UNIT IN THE MORNING, 1 AT NOON AND 2 IN THE EVENING
     Route: 048
  5. XATRAL [Concomitant]
     Indication: BENIGN PROSTATIC HYPERPLASIA
     Dosage: 1 DOSAGE FORMS DAILY;
     Route: 048
  6. TEMESTA [Concomitant]
     Indication: INSOMNIA
     Dosage: 1 DOSAGE FORMS DAILY;
     Route: 048

REACTIONS (4)
  - Embolia cutis medicamentosa [Recovered/Resolved]
  - Cell death [Unknown]
  - Blood creatine phosphokinase increased [Unknown]
  - Erythema [Recovered/Resolved]
